FAERS Safety Report 12305725 (Version 1)
Quarter: 2016Q2

REPORT INFORMATION
  Report Type: Report from Study
  Country: GB (occurrence: GB)
  Receive Date: 20160426
  Receipt Date: 20160426
  Transmission Date: 20160815
  Serious: Yes (Hospitalization)
  Sender: FDA-Public Use
  Company Number: GB-CELGENEUS-GBR-2016042825

PATIENT
  Age: 64 Year
  Sex: Female
  Weight: 45.6 kg

DRUGS (2)
  1. AZACITIDINE INJECTABLE [Suspect]
     Active Substance: AZACITIDINE
     Indication: ACUTE MYELOID LEUKAEMIA
     Dosage: 105 MILLIGRAM
     Route: 058
     Dates: start: 20150928
  2. ROMIDEPSIN [Suspect]
     Active Substance: ROMIDEPSIN
     Indication: ACUTE MYELOID LEUKAEMIA
     Route: 041
     Dates: start: 20151006

REACTIONS (1)
  - Malaise [Unknown]

NARRATIVE: CASE EVENT DATE: 20160411
